FAERS Safety Report 10733706 (Version 1)
Quarter: 2015Q1

REPORT INFORMATION
  Report Type: Report from Study
  Country: AU (occurrence: AU)
  Receive Date: 20150123
  Receipt Date: 20150123
  Transmission Date: 20150721
  Serious: Yes (Hospitalization, Disabling)
  Sender: FDA-Public Use
  Company Number: PHHY2014AU156433

PATIENT
  Age: 19 Year
  Sex: Female

DRUGS (44)
  1. CLOZARIL [Suspect]
     Active Substance: CLOZAPINE
     Dosage: 650 OT
     Route: 048
     Dates: start: 19961011, end: 19961106
  2. CLOZARIL [Suspect]
     Active Substance: CLOZAPINE
     Dosage: 200 OT
     Route: 048
     Dates: start: 20071223, end: 20071226
  3. CLOZARIL [Suspect]
     Active Substance: CLOZAPINE
     Dosage: 600 OT
     Route: 048
     Dates: start: 20140820, end: 20140915
  4. CLOZARIL [Suspect]
     Active Substance: CLOZAPINE
     Dosage: 350 OT
     Route: 048
     Dates: start: 19970715, end: 19970908
  5. CLOZARIL [Suspect]
     Active Substance: CLOZAPINE
     Dosage: 275 OT
     Route: 048
     Dates: start: 20071231, end: 20080102
  6. CLOZARIL [Suspect]
     Active Substance: CLOZAPINE
     Dosage: 550 OT
     Route: 048
     Dates: start: 20090106, end: 20090202
  7. CLOZARIL [Suspect]
     Active Substance: CLOZAPINE
     Dosage: 350 OT
     Route: 048
     Dates: start: 19961107, end: 19970616
  8. CLOZARIL [Suspect]
     Active Substance: CLOZAPINE
     Dosage: 225 OT
     Route: 048
     Dates: start: 19990525, end: 19990919
  9. CLOZARIL [Suspect]
     Active Substance: CLOZAPINE
     Dosage: 300 OT
     Route: 048
     Dates: start: 20080103, end: 20080114
  10. CLOZARIL [Suspect]
     Active Substance: CLOZAPINE
     Dosage: 500 OT
     Route: 048
     Dates: start: 20080916, end: 20081002
  11. CLOZARIL [Suspect]
     Active Substance: CLOZAPINE
     Dosage: 200 OT
     Route: 048
     Dates: start: 20140916, end: 20140922
  12. CLOZARIL [Suspect]
     Active Substance: CLOZAPINE
     Dosage: 550 OT
     Route: 048
     Dates: start: 20141112, end: 20141125
  13. CLOZARIL [Suspect]
     Active Substance: CLOZAPINE
     Indication: SCHIZOPHRENIA
     Dosage: 50 OT
     Route: 048
     Dates: start: 19950623, end: 19950703
  14. CLOZARIL [Suspect]
     Active Substance: CLOZAPINE
     Dosage: 350 OT
     Route: 048
     Dates: start: 19950711, end: 19950717
  15. CLOZARIL [Suspect]
     Active Substance: CLOZAPINE
     Dosage: 400 OT
     Route: 048
     Dates: start: 19950718, end: 19960226
  16. CLOZARIL [Suspect]
     Active Substance: CLOZAPINE
     Dosage: 300 OT
     Route: 048
     Dates: start: 19970617, end: 19970714
  17. CLOZARIL [Suspect]
     Active Substance: CLOZAPINE
     Dosage: 300 OT
     Route: 048
     Dates: start: 19970909, end: 19990308
  18. CLOZARIL [Suspect]
     Active Substance: CLOZAPINE
     Dosage: 500 OT
     Route: 048
     Dates: start: 20080115, end: 20080622
  19. CLOZARIL [Suspect]
     Active Substance: CLOZAPINE
     Dosage: 600 OT
     Route: 048
     Dates: start: 20090428, end: 20090525
  20. CLOZARIL [Suspect]
     Active Substance: CLOZAPINE
     Dosage: 12.5 OT
     Route: 048
     Dates: start: 20071218, end: 20071219
  21. CLOZARIL [Suspect]
     Active Substance: CLOZAPINE
     Dosage: 250 OT
     Route: 048
     Dates: start: 20071227
  22. CLOZARIL [Suspect]
     Active Substance: CLOZAPINE
     Dosage: 600 OT
     Route: 048
     Dates: start: 20090203, end: 20090302
  23. CLOZARIL [Suspect]
     Active Substance: CLOZAPINE
     Dosage: 500 OT
     Route: 048
     Dates: start: 20140723, end: 20140819
  24. CLOZARIL [Suspect]
     Active Substance: CLOZAPINE
     Dosage: 500 OT
     Route: 048
     Dates: start: 20140930, end: 20141111
  25. CLOZARIL [Suspect]
     Active Substance: CLOZAPINE
     Dosage: UNK
     Route: 048
     Dates: start: 20141122
  26. CLOZARIL [Suspect]
     Active Substance: CLOZAPINE
     Dosage: 12.5 OT
     Route: 048
     Dates: start: 20141126
  27. OLANZAPINE. [Concomitant]
     Active Substance: OLANZAPINE
     Indication: PRODUCT USED FOR UNKNOWN INDICATION
     Route: 065
  28. CLOZARIL [Suspect]
     Active Substance: CLOZAPINE
     Dosage: 200 OT
     Route: 048
     Dates: start: 19950704, end: 19950710
  29. CLOZARIL [Suspect]
     Active Substance: CLOZAPINE
     Dosage: 250 OT
     Route: 048
     Dates: start: 19990920, end: 19991019
  30. CLOZARIL [Suspect]
     Active Substance: CLOZAPINE
     Dosage: 450 OT
     Route: 048
     Dates: start: 20080623, end: 20080915
  31. CLOZARIL [Suspect]
     Active Substance: CLOZAPINE
     Dosage: 400 OT
     Route: 048
     Dates: start: 20081003, end: 20081014
  32. CLOZARIL [Suspect]
     Active Substance: CLOZAPINE
     Dosage: 450 OT
     Route: 048
     Dates: start: 20100105, end: 20100201
  33. CLOZARIL [Suspect]
     Active Substance: CLOZAPINE
     Dosage: 550 OT
     Route: 048
     Dates: start: 20100202, end: 20140722
  34. CLOZARIL [Suspect]
     Active Substance: CLOZAPINE
     Dosage: 375 OT
     Route: 048
     Dates: start: 20140923, end: 20140929
  35. CLOZARIL [Suspect]
     Active Substance: CLOZAPINE
     Dosage: 350 OT
     Route: 048
     Dates: start: 19960227, end: 19961010
  36. CLOZARIL [Suspect]
     Active Substance: CLOZAPINE
     Dosage: 250 OT
     Route: 048
     Dates: start: 19990309, end: 19990524
  37. CLOZARIL [Suspect]
     Active Substance: CLOZAPINE
     Dosage: 650 OT
     Route: 048
     Dates: start: 20081202, end: 20090105
  38. CLOZARIL [Suspect]
     Active Substance: CLOZAPINE
     Dosage: 600 OT
     Route: 048
     Dates: start: 20090623, end: 20100104
  39. CLOZARIL [Suspect]
     Active Substance: CLOZAPINE
     Dosage: UNK
     Route: 048
     Dates: end: 20150105
  40. LITHIUM [Concomitant]
     Active Substance: LITHIUM CARBONATE
     Indication: PRODUCT USED FOR UNKNOWN INDICATION
     Route: 065
  41. CLOZARIL [Suspect]
     Active Substance: CLOZAPINE
     Dosage: 50 OT
     Route: 048
     Dates: start: 20071220, end: 20071222
  42. CLOZARIL [Suspect]
     Active Substance: CLOZAPINE
     Dosage: 550 OT
     Route: 048
     Dates: start: 20081015, end: 20081201
  43. CLOZARIL [Suspect]
     Active Substance: CLOZAPINE
     Dosage: 550 OT
     Route: 048
     Dates: start: 20090303, end: 20090427
  44. CLOZARIL [Suspect]
     Active Substance: CLOZAPINE
     Dosage: 550 OT
     Route: 048
     Dates: start: 20090526, end: 20090622

REACTIONS (3)
  - Schizophrenia [Unknown]
  - White blood cell count increased [Recovered/Resolved]
  - Neutrophil count increased [Recovered/Resolved]

NARRATIVE: CASE EVENT DATE: 19951023
